FAERS Safety Report 10635769 (Version 1)
Quarter: 2014Q4

REPORT INFORMATION
  Report Type: Spontaneous
  Country: US (occurrence: US)
  Receive Date: 20141205
  Receipt Date: 20141205
  Transmission Date: 20150529
  Serious: No
  Sender: FDA-Public Use
  Company Number: US-ELI_LILLY_AND_COMPANY-US201411009836

PATIENT
  Sex: Male

DRUGS (5)
  1. ZYRTEC [Concomitant]
     Active Substance: CETIRIZINE HYDROCHLORIDE
     Dosage: UNK, UNKNOWN
     Route: 065
  2. VITAMINS                           /90003601/ [Concomitant]
     Active Substance: VITAMINS
     Dosage: UNK, UNKNOWN
     Route: 065
  3. HYDROXYZINE HCL [Concomitant]
     Active Substance: HYDROXYZINE HYDROCHLORIDE
     Dosage: UNK, UNKNOWN
     Route: 065
  4. CYMBALTA [Suspect]
     Active Substance: DULOXETINE HYDROCHLORIDE
     Indication: MOOD ALTERED
     Dosage: 30 MG, UNKNOWN
     Route: 065
     Dates: start: 2007
  5. DULOXETINE HYDROCHLORIDE. [Suspect]
     Active Substance: DULOXETINE HYDROCHLORIDE
     Indication: MOOD ALTERED
     Dosage: 30 MG, QD
     Route: 065
     Dates: start: 201403

REACTIONS (2)
  - Drug ineffective [Unknown]
  - Rash [Recovered/Resolved]
